FAERS Safety Report 7860076-6 (Version None)
Quarter: 2011Q4

REPORT INFORMATION
  Report Type: 
  Country: None (occurrence: None)
  Receive Date: 20111025
  Receipt Date: 20111017
  Transmission Date: 20120403
  Serious: Yes (Other)
  Sender: FDA-Public Use
  Company Number: US-ACCORD-010818

PATIENT
  Age: 57 Year
  Sex: Female

DRUGS (3)
  1. MYCOPHENOLATE MOFETIL [Concomitant]
  2. PREDNISONE TAB [Concomitant]
  3. TACROLIMUS [Suspect]
     Indication: IMMUNOSUPPRESSION
     Dosage: 50-MG-2.00 TIMES PER-1.0 DAYS

REACTIONS (11)
  - NEUROTOXICITY [None]
  - BLOOD MAGNESIUM DECREASED [None]
  - BLOOD CREATININE INCREASED [None]
  - HYPOAESTHESIA [None]
  - NEPHROPATHY TOXIC [None]
  - ELECTROENCEPHALOGRAM ABNORMAL [None]
  - CATATONIA [None]
  - SYSTOLIC HYPERTENSION [None]
  - HEADACHE [None]
  - CONFUSIONAL STATE [None]
  - IMMUNOSUPPRESSANT DRUG LEVEL DECREASED [None]
